FAERS Safety Report 13159822 (Version 1)
Quarter: 2017Q1

REPORT INFORMATION
  Report Type: Report from Study
  Country: US (occurrence: US)
  Receive Date: 20170127
  Receipt Date: 20170127
  Transmission Date: 20170428
  Serious: Yes (Other)
  Sender: FDA-Public Use
  Company Number: PHHO2017US001889

PATIENT
  Age: 59 Year
  Sex: Female
  Weight: 109.7 kg

DRUGS (1)
  1. GSK1120212 [Suspect]
     Active Substance: TRAMETINIB
     Indication: OVARIAN EPITHELIAL CANCER
     Dosage: 2 MG, QD
     Route: 048
     Dates: start: 20150713, end: 20151021

REACTIONS (1)
  - Retinal vascular disorder [Unknown]

NARRATIVE: CASE EVENT DATE: 20151011
